FAERS Safety Report 9878818 (Version 1)
Quarter: 2014Q1

REPORT INFORMATION
  Report Type: Spontaneous
  Country: FR (occurrence: FR)
  Receive Date: 20140206
  Receipt Date: 20140206
  Transmission Date: 20141002
  Serious: Yes (Hospitalization)
  Sender: FDA-Public Use
  Company Number: FR-GLAXOSMITHKLINE-B0965217A

PATIENT
  Age: 87 Year
  Sex: Female

DRUGS (23)
  1. CLAMOXYL [Suspect]
     Indication: PRODUCT USED FOR UNKNOWN INDICATION
     Dosage: 1UNIT PER DAY
     Route: 048
     Dates: start: 20131230, end: 20140103
  2. ZELITREX [Suspect]
     Indication: HERPES ZOSTER
     Dosage: 1UNIT THREE TIMES PER DAY
     Route: 048
     Dates: start: 20131224, end: 20140106
  3. LEXOMIL [Concomitant]
  4. STILNOX [Concomitant]
  5. LAROXYL [Concomitant]
  6. COUMADINE [Concomitant]
  7. ISOPTINE [Concomitant]
  8. HEMIGOXINE [Concomitant]
  9. NEOMERCAZOLE [Concomitant]
  10. BRICANYL [Concomitant]
  11. PULMICORT [Concomitant]
  12. VIRLIX [Concomitant]
  13. MOVICOL [Concomitant]
  14. PROCTOLOG [Concomitant]
  15. NOVATREX [Concomitant]
  16. SPECIAFOLDINE [Concomitant]
  17. ACTONEL [Concomitant]
  18. DAFALGAN [Concomitant]
  19. CHOLECALCIFEROL [Concomitant]
  20. GANFORT [Concomitant]
  21. SODIUM HYALURONATE [Concomitant]
  22. OMEPRAZOLE [Concomitant]
  23. ROCEPHINE [Concomitant]
     Dates: start: 20131227, end: 20131229

REACTIONS (7)
  - Eosinophilia [Not Recovered/Not Resolved]
  - Rash erythematous [Recovering/Resolving]
  - Rash macular [Recovering/Resolving]
  - Fall [Unknown]
  - Altered state of consciousness [Unknown]
  - Leukocytosis [Unknown]
  - Pyelonephritis [Unknown]
